FAERS Safety Report 9198693 (Version 2)
Quarter: 2013Q2

REPORT INFORMATION
  Report Type: Spontaneous
  Country: US (occurrence: US)
  Receive Date: 20130329
  Receipt Date: 20130419
  Transmission Date: 20140414
  Serious: Yes (Other)
  Sender: FDA-Public Use
  Company Number: US-PFIZER INC-2013100338

PATIENT
  Age: 59 Year
  Sex: Male
  Weight: 102 kg

DRUGS (6)
  1. CELEBREX [Suspect]
     Indication: RHEUMATOID ARTHRITIS
     Dosage: 200 MG, 2X/DAY
  2. CELEBREX [Suspect]
     Indication: PAIN
     Dosage: 200 MG DAILY
     Dates: end: 2013
  3. TYLENOL [Suspect]
     Indication: PAIN
     Dosage: UNK
  4. MOBIC [Suspect]
     Indication: RHEUMATOID ARTHRITIS
     Dosage: 15MG DAILY
     Dates: start: 2013
  5. MOBIC [Suspect]
     Indication: PAIN
  6. METHOTREXATE [Concomitant]
     Indication: RHEUMATOID ARTHRITIS
     Dosage: 7.5 MG, WEEKLY

REACTIONS (3)
  - Arthropathy [Unknown]
  - Intentional drug misuse [Unknown]
  - Drug ineffective [Not Recovered/Not Resolved]
